FAERS Safety Report 18623877 (Version 2)
Quarter: 2020Q4

REPORT INFORMATION
  Report Type: Spontaneous
  Country: US (occurrence: US)
  Receive Date: 20201216
  Receipt Date: 20201221
  Transmission Date: 20210114
  Serious: No
  Sender: FDA-Public Use
  Company Number: US-PFIZER INC-2020487401

PATIENT
  Age: 11 Year
  Sex: Male

DRUGS (2)
  1. COTEMPLA XR-ODT [Concomitant]
     Active Substance: METHYLPHENIDATE
     Dosage: 17.3 MG, 1X/DAY (TAKES IT IN THE MORNING ONE HOUR BEFORE TAKING SERTRALINE)
  2. SERTRALINE HCL [Suspect]
     Active Substance: SERTRALINE HYDROCHLORIDE
     Indication: GENERALISED ANXIETY DISORDER
     Dosage: 3 ML, 1X/DAY
     Route: 048

REACTIONS (3)
  - Off label use [Unknown]
  - Tongue discomfort [Unknown]
  - Product preparation error [Unknown]
